FAERS Safety Report 5175879-9 (Version None)
Quarter: 2006Q4

REPORT INFORMATION
  Report Type: 
  Country: None (occurrence: None)
  Receive Date: 20061215
  Receipt Date: 20061211
  Transmission Date: 20070319
  Serious: Yes (Other)
  Sender: FDA-Public Use
  Company Number: US-GLAXOSMITHKLINE-A0631167A

PATIENT
  Age: 31 Year
  Sex: Female

DRUGS (8)
  1. IMITREX [Suspect]
     Indication: DRUG USE FOR UNKNOWN INDICATION
     Dosage: 100MG AS REQUIRED
     Route: 048
     Dates: start: 20061208
  2. GLUCOTROL [Concomitant]
  3. NEURONTIN [Concomitant]
  4. LIPITOR [Concomitant]
  5. METFORMIN HCL [Concomitant]
  6. PRILOSEC [Concomitant]
  7. NOVOLIN 70/30 [Concomitant]
  8. QUINAPRIL [Concomitant]

REACTIONS (3)
  - DYSPHEMIA [None]
  - DYSTONIA [None]
  - FLUSHING [None]
